FAERS Safety Report 17958848 (Version 1)
Quarter: 2020Q2

REPORT INFORMATION
  Report Type: Report from Study
  Country: None (occurrence: US)
  Receive Date: 20200630
  Receipt Date: 20200630
  Transmission Date: 20200714
  Serious: Yes (Hospitalization)
  Sender: FDA-Public Use
  Company Number: US-ABBVIE-20K-163-3463107-00

PATIENT
  Age: 74 Year
  Sex: Female
  Weight: 79.45 kg

DRUGS (1)
  1. SYNTHROID [Suspect]
     Active Substance: LEVOTHYROXINE SODIUM
     Indication: HYPOTHYROIDISM
     Route: 048

REACTIONS (7)
  - White blood cell count increased [Recovering/Resolving]
  - Headache [Recovered/Resolved]
  - Fracture [Recovering/Resolving]
  - Blood sodium decreased [Recovering/Resolving]
  - Pain [Recovering/Resolving]
  - Blood magnesium decreased [Recovering/Resolving]
  - Asthenia [Recovering/Resolving]

NARRATIVE: CASE EVENT DATE: 2018
